FAERS Safety Report 6704213-5 (Version None)
Quarter: 2010Q2

REPORT INFORMATION
  Report Type: 
  Country: None (occurrence: None)
  Receive Date: 20100423
  Receipt Date: 20100125
  Transmission Date: 20101027
  Serious: No
  Sender: FDA-Public Use
  Company Number: ALL1-2010-00370

PATIENT
  Age: 18 Year
  Sex: Female

DRUGS (1)
  1. VYVANSE [Suspect]
     Indication: DRUG USE FOR UNKNOWN INDICATION
     Dosage: 30 MG, 1X/DAY:QD, ORAL
     Route: 048
     Dates: start: 20100101

REACTIONS (2)
  - PAIN [None]
  - PYREXIA [None]
